FAERS Safety Report 7779661-5 (Version None)
Quarter: 2011Q3

REPORT INFORMATION
  Report Type: 
  Country: None (occurrence: None)
  Receive Date: 20110927
  Receipt Date: 20090408
  Transmission Date: 20111222
  Serious: Yes (Death, Other)
  Sender: FDA-Public Use
  Company Number: US-BAYER-200911468NA

PATIENT
  Sex: Female
  Weight: 63.492 kg

DRUGS (59)
  1. OPTIMARK [Suspect]
     Indication: DIAGNOSTIC PROCEDURE
     Dosage: 10 ML, UNK
     Dates: start: 20030121
  2. ROCALTROL [Concomitant]
  3. PLAQUENIL [Concomitant]
  4. PREDNISONE [Concomitant]
  5. VASOTEC [Concomitant]
  6. RENAGEL [Concomitant]
  7. LISINOPRIL [Concomitant]
  8. INTAL [Concomitant]
  9. MAGNEVIST [Suspect]
     Indication: DIAGNOSTIC PROCEDURE
  10. OMNISCAN [Suspect]
     Indication: ANGIOGRAM
     Dosage: 20 ML
     Dates: start: 20010125
  11. PROHANCE [Suspect]
     Indication: DIAGNOSTIC PROCEDURE
  12. GADOLINIUM IN UNSPECIFIED DRUG [Suspect]
     Dosage: UNK
     Dates: start: 19980217
  13. CYTOXAN [Concomitant]
  14. PLAVIX [Concomitant]
  15. ACETYLSALICYLIC ACID SRT [Concomitant]
  16. KAYEXALATE [Concomitant]
  17. AMIODARONE HCL [Concomitant]
  18. HYDROCORTISONE [Concomitant]
  19. HYDROCHLOROTHIAZIDE [Concomitant]
  20. DUONEB [Concomitant]
  21. PENTAMIDINE ISETHIONATE [Concomitant]
  22. POLYGAM S/D [Concomitant]
  23. AMITRIPTYLINE HCL [Concomitant]
  24. EPOGEN [Concomitant]
  25. SODIUM BICARBONATE [Concomitant]
  26. NEURONTIN [Concomitant]
  27. TACROLIMUS [Concomitant]
  28. LOPID [Concomitant]
  29. AZATHIOPRINE [Concomitant]
  30. LASIX [Concomitant]
  31. ALUMINUM HYDROXIDE [Concomitant]
  32. MULTIHANCE [Suspect]
     Indication: DIAGNOSTIC PROCEDURE
  33. GADOLINIUM IN UNSPECIFIED DRUG [Suspect]
     Indication: NUCLEAR MAGNETIC RESONANCE IMAGING
     Dosage: UNK
     Dates: start: 19970106
  34. MEGACE [Concomitant]
  35. ZEMPLAR [Concomitant]
  36. CLONIDINE [Concomitant]
  37. OMNISCAN [Suspect]
     Dosage: 10 ML
     Dates: start: 20060406
  38. OPTIMARK [Suspect]
     Indication: NUCLEAR MAGNETIC RESONANCE IMAGING
  39. CALCITRIOL [Concomitant]
  40. FOSRENOL [Concomitant]
  41. OMNISCAN [Suspect]
     Indication: DIAGNOSTIC PROCEDURE
     Dosage: 12 ML, UNK
     Dates: start: 20000612
  42. OMNISCAN [Suspect]
     Indication: NUCLEAR MAGNETIC RESONANCE IMAGING
     Dosage: 12 ML, UNK
     Dates: start: 20001020
  43. OMNISCAN [Suspect]
     Dosage: 20 ML
     Dates: start: 20040312
  44. CALCIUM CARBONATE [Concomitant]
  45. IMURAN [Concomitant]
  46. ALBUTEROL [Concomitant]
  47. FLUCONAZOLE [Concomitant]
  48. HYDRALAZINE HCL [Concomitant]
  49. NITROGLYCERIN [Concomitant]
  50. OMNISCAN [Suspect]
     Dosage: 15 ML
     Dates: start: 20060720
  51. GADOLINIUM IN UNSPECIFIED DRUG [Suspect]
     Indication: ANGIOGRAM
     Dosage: UNK
     Dates: start: 19970718
  52. GADOLINIUM IN UNSPECIFIED DRUG [Suspect]
     Dosage: UNK
     Dates: start: 20001226
  53. MYCOPHENOLATE MOFETIL (CELLCEPT) [Concomitant]
  54. ARGATROBAN [Concomitant]
  55. PROCARDIA XL [Concomitant]
  56. NEPHROVITE [VIT C,VIT H,B5,B12,B9,B3,B6,B2,B1 HCL] [Concomitant]
  57. METOPROLOL TARTRATE [Concomitant]
  58. NORVASC [Concomitant]
  59. ZOCOR [Concomitant]

REACTIONS (22)
  - MUSCULOSKELETAL STIFFNESS [None]
  - JOINT RANGE OF MOTION DECREASED [None]
  - SKIN ULCER [None]
  - GAIT DISTURBANCE [None]
  - MUSCLE TIGHTNESS [None]
  - ASTHENIA [None]
  - PRURITUS GENERALISED [None]
  - PAIN [None]
  - EXTREMITY CONTRACTURE [None]
  - SKIN INDURATION [None]
  - SKIN HYPERTROPHY [None]
  - NEPHROGENIC SYSTEMIC FIBROSIS [None]
  - HYPOAESTHESIA [None]
  - SKIN TIGHTNESS [None]
  - SKIN DISCOLOURATION [None]
  - SCAR [None]
  - JOINT STIFFNESS [None]
  - RASH ERYTHEMATOUS [None]
  - ANHEDONIA [None]
  - MOBILITY DECREASED [None]
  - MOTOR DYSFUNCTION [None]
  - SKIN LESION [None]
